FAERS Safety Report 9180971 (Version 1)
Quarter: 2013Q1

REPORT INFORMATION
  Report Type: Spontaneous
  Country: US (occurrence: US)
  Receive Date: 20130322
  Receipt Date: 20130322
  Transmission Date: 20140127
  Serious: No
  Sender: FDA-Public Use
  Company Number: US-B.I. PHARMACEUTICALS,INC./RIDGEFIELD-2013-BI-06692BP

PATIENT
  Age: 78 Year
  Sex: Female

DRUGS (4)
  1. JENTADUETO [Suspect]
  2. CRESTOR [Concomitant]
     Indication: HYPERLIPIDAEMIA
     Dates: start: 20100707
  3. ACCUPRIL [Concomitant]
     Indication: HYPERTENSION
     Dates: start: 20100707
  4. STARLIX [Concomitant]
     Indication: DIABETES MELLITUS
     Dates: start: 20100707

REACTIONS (5)
  - Paraesthesia oral [Recovered/Resolved]
  - Paraesthesia [Recovered/Resolved]
  - Oral discomfort [Recovered/Resolved]
  - Burning sensation [Recovered/Resolved]
  - Overdose [Recovered/Resolved]
